FAERS Safety Report 19824740 (Version 1)
Quarter: 2021Q3

REPORT INFORMATION
  Report Type: Spontaneous
  Country: US (occurrence: US)
  Receive Date: 20210913
  Receipt Date: 20210913
  Transmission Date: 20211014
  Serious: Yes (Hospitalization)
  Sender: FDA-Public Use
  Company Number: None

PATIENT
  Sex: Female

DRUGS (1)
  1. UDENYCA [Suspect]
     Active Substance: PEGFILGRASTIM-CBQV
     Indication: AGRANULOCYTOSIS
     Dosage: ?          OTHER FREQUENCY:GIVEN AFTER 5FU;?
     Route: 058

REACTIONS (1)
  - Therapy interrupted [None]
